FAERS Safety Report 8406873-X (Version None)
Quarter: 2012Q2

REPORT INFORMATION
  Report Type: 
  Country: None (occurrence: None)
  Receive Date: 20120604
  Receipt Date: 20120521
  Transmission Date: 20120825
  Serious: Yes (Disabling)
  Sender: FDA-Public Use
  Company Number: FR-INCYTE CORPORATION-2012IN000746

PATIENT
  Sex: Female

DRUGS (2)
  1. INCB018424 [Suspect]
     Indication: MYELOFIBROSIS
     Dosage: 20 MG, BID
     Route: 048
  2. INCB018424 [Suspect]
     Dosage: 10 MG, BID
     Route: 048
     Dates: start: 20120220

REACTIONS (2)
  - HYPERAESTHESIA [None]
  - THROMBOCYTOPENIA [None]
